FAERS Safety Report 7559575-6 (Version None)
Quarter: 2011Q2

REPORT INFORMATION
  Report Type: 
  Country: None (occurrence: None)
  Receive Date: 20110606
  Receipt Date: 20110526
  Transmission Date: 20111010
  Serious: Yes (Other)
  Sender: FDA-Public Use
  Company Number: AEISR201100125

PATIENT
  Age: 60 Year
  Sex: Male
  Weight: 75 kg

DRUGS (3)
  1. GAMUNEX [Suspect]
     Indication: NEUROPATHY PERIPHERAL
     Dosage: 30 GM;X1;IV
     Route: 042
     Dates: start: 20110502, end: 20110502
  2. VIGAM /01995701/ (IMMUNOGLOBULIN) (5 PCT) [Suspect]
     Indication: NEUROPATHY PERIPHERAL
     Dosage: 30 GM;Q3W;IV
     Route: 042
     Dates: start: 20101101, end: 20110501
  3. CARDILOC [Concomitant]

REACTIONS (5)
  - PERIPHERAL MOTOR NEUROPATHY [None]
  - CONDITION AGGRAVATED [None]
  - DRUG INEFFECTIVE [None]
  - DISEASE PROGRESSION [None]
  - DRUG INEFFECTIVE FOR UNAPPROVED INDICATION [None]
